FAERS Safety Report 6698316-1 (Version None)
Quarter: 2010Q2

REPORT INFORMATION
  Report Type: 
  Country: None (occurrence: None)
  Receive Date: 20100427
  Receipt Date: 20100422
  Transmission Date: 20101027
  Serious: Yes (Hospitalization, Disabling)
  Sender: FDA-Public Use
  Company Number: AU-SANOFI-AVENTIS-2010SA018733

PATIENT
  Sex: Female

DRUGS (19)
  1. ENOXAPARIN SODIUM [Suspect]
     Indication: PULMONARY EMBOLISM
     Route: 058
     Dates: start: 20090201
  2. ENOXAPARIN SODIUM [Suspect]
     Route: 058
  3. ESOMEPRAZOLE [Concomitant]
  4. WARFARIN SODIUM [Concomitant]
  5. IBUPROFEN [Concomitant]
  6. ATORVASTATIN [Concomitant]
  7. CITALOPRAM HYDROBROMIDE [Concomitant]
  8. VITAMIN D [Concomitant]
  9. MAGNESIUM [Concomitant]
  10. MULTI-VITAMINS [Concomitant]
  11. AMOXICILLIN AND CLAVULANATE POTASSIUM [Concomitant]
  12. BACTRIM [Concomitant]
  13. CEFACLOR [Concomitant]
  14. CIPROFLOXACIN [Concomitant]
  15. ACETAMINOPHEN WITH PROPOXYPHENE HCL TAB [Concomitant]
  16. DOLOBID [Concomitant]
  17. ERYTHROMYCIN [Concomitant]
  18. HALOPERIDOL [Concomitant]
  19. INDOCIN [Concomitant]

REACTIONS (9)
  - ANAEMIA [None]
  - APHASIA [None]
  - ATAXIA [None]
  - BACK PAIN [None]
  - CHEST DISCOMFORT [None]
  - DERMATITIS ALLERGIC [None]
  - FEELING ABNORMAL [None]
  - MUSCULAR WEAKNESS [None]
  - TREMOR [None]
